FAERS Safety Report 5220090-6 (Version None)
Quarter: 2007Q1

REPORT INFORMATION
  Report Type: 
  Country: None (occurrence: None)
  Receive Date: 20070125
  Receipt Date: 20070125
  Transmission Date: 20070707
  Serious: Yes (Other)
  Sender: FDA-Public Use
  Company Number: None

PATIENT
  Age: 29 Year
  Sex: Female
  Weight: 52 kg

DRUGS (9)
  1. IMMUNE GLOBULIN, I.V. -GAMUNEX-  5 G VIAL  TALECRIS [Suspect]
     Indication: IMMUNOLOGY TEST ABNORMAL
     Dosage: 3 G  DAILY  IV DRIP   1 DOSE
     Route: 041
     Dates: start: 20070105
  2. IMMUNE GLOBULIN I.V. -GAMUNEX-  10 G VIAL  TALECRIS [Suspect]
     Indication: IMMUNOLOGY TEST ABNORMAL
     Dosage: 10 G  DAILY  IV DRIP  1 DOSE
     Route: 041
     Dates: start: 20070105
  3. ACYCLOVIR [Concomitant]
  4. CYCLOPHOSPHAMIDE [Concomitant]
  5. ENOXAPARIN SODIUM [Concomitant]
  6. ESOMEPRAZOLE MAGNESIUM [Concomitant]
  7. FUROSEMIDE [Concomitant]
  8. METHYLPREDNISOLONE 16MG TAB [Concomitant]
  9. POTASSIUM CHLORIDE [Concomitant]

REACTIONS (3)
  - AURA [None]
  - GRAND MAL CONVULSION [None]
  - VISUAL DISTURBANCE [None]
